FAERS Safety Report 9315573 (Version 1)
Quarter: 2013Q2

REPORT INFORMATION
  Report Type: Spontaneous
  Country: US (occurrence: US)
  Receive Date: 20130529
  Receipt Date: 20130529
  Transmission Date: 20140414
  Serious: Yes (Other)
  Sender: FDA-Public Use
  Company Number: US-BRISTOL-MYERS SQUIBB COMPANY-18917740

PATIENT
  Age: 71 Year
  Sex: Female
  Weight: 86.17 kg

DRUGS (1)
  1. BYDUREON 2MG SUSPENSION [Suspect]
     Indication: TYPE 2 DIABETES MELLITUS
     Dosage: NO OF INJECTIONS:11?LAST DOSE:19MAY2013
     Route: 058
     Dates: start: 20130310

REACTIONS (8)
  - Pneumonia [Recovered/Resolved]
  - Chest pain [Recovered/Resolved]
  - Arthropathy [Not Recovered/Not Resolved]
  - Nausea [Not Recovered/Not Resolved]
  - Diarrhoea [Not Recovered/Not Resolved]
  - Abnormal faeces [Not Recovered/Not Resolved]
  - Malabsorption [Not Recovered/Not Resolved]
  - Abdominal pain upper [Not Recovered/Not Resolved]
